FAERS Safety Report 5674589-9 (Version None)
Quarter: 2008Q1

REPORT INFORMATION
  Report Type: 
  Country: None (occurrence: None)
  Receive Date: 20080320
  Receipt Date: 20080312
  Transmission Date: 20080703
  Serious: Yes (Other)
  Sender: FDA-Public Use
  Company Number: US-JNJFOC-20080303433

PATIENT
  Sex: Female
  Weight: 80.74 kg

DRUGS (4)
  1. FENTANYL TRANSDERMAL SYSTEM [Suspect]
     Route: 062
  2. FENTANYL TRANSDERMAL SYSTEM [Suspect]
     Indication: RADICULAR PAIN
     Route: 062
  3. FENTANYL TRANSDERMAL SYSTEM [Suspect]
     Dosage: 2 X 50 UG/HR PATCHES
     Route: 062
  4. FENTANYL TRANSDERMAL SYSTEM [Suspect]
     Indication: RADICULAR PAIN
     Route: 062

REACTIONS (8)
  - AMNESIA [None]
  - APPLICATION SITE RASH [None]
  - BALANCE DISORDER [None]
  - CONFUSIONAL STATE [None]
  - INADEQUATE ANALGESIA [None]
  - OSTEOARTHRITIS [None]
  - PHARMACEUTICAL PRODUCT COMPLAINT [None]
  - SPEECH DISORDER [None]
